FAERS Safety Report 8811223 (Version 1)
Quarter: 2012Q4

REPORT INFORMATION
  Report Type: 
  Country: LB (occurrence: LB)
  Receive Date: 20120927
  Receipt Date: 20120927
  Transmission Date: 20130627
  Serious: Yes (Other)
  Sender: FDA-Public Use
  Company Number: LB-SANOFI-AVENTIS-2012SA069926

PATIENT
  Age: 38 Year
  Sex: Female

DRUGS (2)
  1. LANTUS [Suspect]
     Indication: GESTATIONAL DIABETES
     Dosage: Dose:10 unit(s)
     Route: 065
  2. METFORMIN [Concomitant]

REACTIONS (2)
  - Abortion spontaneous [Unknown]
  - Exposure during pregnancy [Unknown]
